FAERS Safety Report 6495558-5 (Version None)
Quarter: 2009Q4

REPORT INFORMATION
  Report Type: 
  Country: None (occurrence: None)
  Receive Date: 20091214
  Receipt Date: 20090713
  Transmission Date: 20100525
  Serious: No
  Sender: FDA-Public Use
  Company Number: US-BRISTOL-MYERS SQUIBB COMPANY-14700488

PATIENT

DRUGS (3)
  1. ABILIFY [Suspect]
     Dosage: PAKAGE ID: 1-1QYTZV
  2. ZYPREXA [Suspect]
     Dosage: PAKAGE ID: 1-1QYTZV
  3. SEROQUEL [Suspect]
     Dosage: PAKAGE ID: 1-1QYTZV

REACTIONS (1)
  - WEIGHT INCREASED [None]
